FAERS Safety Report 10518550 (Version 2)
Quarter: 2014Q4

REPORT INFORMATION
  Report Type: Spontaneous
  Country: JP (occurrence: JP)
  Receive Date: 20141015
  Receipt Date: 20141105
  Transmission Date: 20150528
  Serious: Yes (Disabling, Other)
  Sender: FDA-Public Use
  Company Number: JP-GE HEALTHCARE MEDICAL DIAGNOSTICS-OSCN-PR-1410S-0153

PATIENT
  Age: 43 Year
  Sex: Female

DRUGS (23)
  1. OMNISCAN [Suspect]
     Active Substance: GADODIAMIDE
     Route: 042
     Dates: start: 20070213, end: 20070213
  2. OMNISCAN [Suspect]
     Active Substance: GADODIAMIDE
     Route: 042
     Dates: start: 20070925, end: 20070925
  3. OMNISCAN [Suspect]
     Active Substance: GADODIAMIDE
     Route: 042
     Dates: start: 20080408, end: 20080408
  4. EXCEGRAN [Concomitant]
     Active Substance: ZONISAMIDE
  5. AMOBAN [Concomitant]
     Active Substance: ZOPICLONE
  6. OMNISCAN [Suspect]
     Active Substance: GADODIAMIDE
     Route: 042
     Dates: start: 20070410, end: 20070410
  7. OMNISCAN [Suspect]
     Active Substance: GADODIAMIDE
     Route: 042
     Dates: start: 20091124, end: 20091124
  8. OMNISCAN [Suspect]
     Active Substance: GADODIAMIDE
     Indication: DIAGNOSTIC PROCEDURE
     Route: 042
     Dates: start: 20060826, end: 20060826
  9. OMNISCAN [Suspect]
     Active Substance: GADODIAMIDE
     Route: 042
     Dates: start: 20080722, end: 20080722
  10. OMNISCAN [Suspect]
     Active Substance: GADODIAMIDE
     Route: 042
     Dates: start: 20090414, end: 20090414
  11. PHENOBAL [Concomitant]
     Active Substance: PHENOBARBITAL
  12. OMNISCAN [Suspect]
     Active Substance: GADODIAMIDE
     Route: 042
     Dates: start: 20081118, end: 20081118
  13. DIAMOX SEQUELS [Concomitant]
     Active Substance: ACETAZOLAMIDE
  14. OMNISCAN [Suspect]
     Active Substance: GADODIAMIDE
     Route: 042
     Dates: start: 20070605, end: 20070605
  15. ALEVIATIN [Suspect]
     Active Substance: PHENYTOIN SODIUM
     Indication: PRODUCT USED FOR UNKNOWN INDICATION
     Dosage: DOSE NOT REPORTED
     Route: 065
  16. OMNISCAN [Suspect]
     Active Substance: GADODIAMIDE
     Route: 042
     Dates: start: 20061024, end: 20061024
  17. FOLIAMIN [Concomitant]
     Active Substance: FOLIC ACID
  18. OMNISCAN [Suspect]
     Active Substance: GADODIAMIDE
     Indication: INVESTIGATION
     Route: 042
     Dates: start: 20060606, end: 20060606
  19. OMNISCAN [Suspect]
     Active Substance: GADODIAMIDE
     Route: 042
     Dates: start: 20061219, end: 20061219
  20. OMNISCAN [Suspect]
     Active Substance: GADODIAMIDE
     Route: 042
     Dates: start: 20070731, end: 20070731
  21. OMNISCAN [Suspect]
     Active Substance: GADODIAMIDE
     Route: 042
     Dates: start: 20071218, end: 20071218
  22. OMNISCAN [Suspect]
     Active Substance: GADODIAMIDE
     Route: 042
     Dates: start: 20090818, end: 20090818
  23. RHYTHMY [Concomitant]
     Active Substance: RILMAZAFONE HYDROCHLORIDE

REACTIONS (1)
  - Cerebellar atrophy [Not Recovered/Not Resolved]

NARRATIVE: CASE EVENT DATE: 20140624
